FAERS Safety Report 25048627 (Version 1)
Quarter: 2025Q1

REPORT INFORMATION
  Report Type: Spontaneous
  Country: JP (occurrence: JP)
  Receive Date: 20250307
  Receipt Date: 20250307
  Transmission Date: 20250409
  Serious: Yes (Death)
  Sender: NOVARTIS
  Company Number: JP-002147023-NVSJ2025JP002847

PATIENT
  Age: 60 Year
  Sex: Male

DRUGS (1)
  1. PAZOPANIB [Suspect]
     Active Substance: PAZOPANIB
     Indication: Dedifferentiated liposarcoma
     Route: 065

REACTIONS (3)
  - Dedifferentiated liposarcoma [Fatal]
  - Malignant neoplasm progression [Fatal]
  - Treatment failure [Unknown]
